FAERS Safety Report 9445223 (Version 2)
Quarter: 2013Q3

REPORT INFORMATION
  Report Type: Spontaneous
  Country: US (occurrence: US)
  Receive Date: 20130807
  Receipt Date: 20130828
  Transmission Date: 20140515
  Serious: Yes (Death)
  Sender: FDA-Public Use
  Company Number: US-FRI-1000047404

PATIENT
  Age: 51 Year
  Sex: Female
  Weight: 85.28 kg

DRUGS (6)
  1. VIIBRYD [Suspect]
     Indication: DEPRESSION
     Dosage: 40MG
     Route: 048
     Dates: start: 20121022, end: 20130723
  2. OXYCODONE [Concomitant]
  3. PREDNISONE [Concomitant]
  4. KLONOPIN [Concomitant]
  5. SYNTHROID [Concomitant]
  6. TRAZODONE [Concomitant]
     Dosage: 50MG

REACTIONS (2)
  - Completed suicide [Fatal]
  - Overdose [Fatal]
